FAERS Safety Report 5014430-0 (Version None)
Quarter: 2006Q2

REPORT INFORMATION
  Report Type: 
  Country: None (occurrence: None)
  Receive Date: 20060531
  Receipt Date: 20050926
  Transmission Date: 20061013
  Serious: Yes (Other)
  Sender: FDA-Public Use
  Company Number: PHEH2005US10692

PATIENT
  Age: 48 Year
  Sex: Female
  Weight: 94.3 kg

DRUGS (20)
  1. ZOMETA [Suspect]
     Indication: METASTASES TO BONE
     Dosage: 4 MG, QMO
     Dates: start: 20020321, end: 20040417
  2. ZOMETA [Suspect]
     Dosage: 4MG Q8WKS
     Dates: start: 20040501, end: 20041001
  3. AREDIA [Suspect]
     Indication: METASTASES TO BONE
     Dosage: 90 MG, QMO
     Dates: start: 19990623, end: 19990801
  4. AREDIA [Suspect]
     Dosage: 90 MG, QMO
     Dates: start: 20011111, end: 20020221
  5. SYNTHROID [Concomitant]
     Indication: AUTOIMMUNE THYROIDITIS
     Dosage: 0.015 MG, QD
  6. CALCIUM GLUCONATE [Concomitant]
  7. HERBAL EXTRACTS NOS [Concomitant]
  8. TAXOL [Concomitant]
  9. NOVANTRONE [Concomitant]
  10. THIOTEPA [Concomitant]
  11. CYTOXAN [Concomitant]
  12. ADRIAMYCIN PFS [Concomitant]
  13. HERCEPTIN [Concomitant]
  14. NOLVADEX [Concomitant]
  15. FEMARA [Concomitant]
  16. AROMASIN [Concomitant]
  17. ZOLOFT [Concomitant]
     Dosage: 50 MG, QD
  18. ATIVAN [Concomitant]
     Indication: ANXIETY
     Dosage: 1MG Q6H, PRN
  19. TAMOXIFEN [Concomitant]
     Dosage: 20 MG, QD
  20. THERATOPE [Concomitant]
     Indication: BREAST CANCER
     Dosage: 6 DOSES
     Dates: start: 20000301, end: 20001101

REACTIONS (41)
  - ACTINOMYCOSIS [None]
  - ALOPECIA [None]
  - ANAEMIA [None]
  - ANXIETY [None]
  - ATELECTASIS [None]
  - BONE DISORDER [None]
  - BONE FORMATION INCREASED [None]
  - BONE OPERATION [None]
  - DYSPNOEA EXERTIONAL [None]
  - ERYTHEMA [None]
  - FATIGUE [None]
  - FISTULA [None]
  - GINGIVAL OEDEMA [None]
  - HOT FLUSH [None]
  - HYPERTENSION [None]
  - INFLAMMATION [None]
  - KLEBSIELLA INFECTION [None]
  - LIBIDO DECREASED [None]
  - MALAISE [None]
  - MORGANELLA INFECTION [None]
  - MYALGIA [None]
  - ORAL DISCHARGE [None]
  - ORAL DISCOMFORT [None]
  - OSTEOLYSIS [None]
  - OSTEOMYELITIS [None]
  - OTITIS EXTERNA [None]
  - OTORRHOEA [None]
  - PARAESTHESIA [None]
  - PERIODONTAL DISEASE [None]
  - PRIMARY SEQUESTRUM [None]
  - PURULENT DISCHARGE [None]
  - PYREXIA [None]
  - SOFT TISSUE DISORDER [None]
  - SWELLING [None]
  - TOOTH ABSCESS [None]
  - TOOTH DISORDER [None]
  - TOOTH EXTRACTION [None]
  - TOOTH FRACTURE [None]
  - TOOTH INFECTION [None]
  - TOOTH LOSS [None]
  - WOUND DEBRIDEMENT [None]
